FAERS Safety Report 9628978 (Version 3)
Quarter: 2014Q1

REPORT INFORMATION
  Report Type: Spontaneous
  Country: IE (occurrence: IE)
  Receive Date: 20131017
  Receipt Date: 20140225
  Transmission Date: 20141002
  Serious: Yes (Hospitalization)
  Sender: FDA-Public Use
  Company Number: IE-IPSEN BIOPHARMACEUTICALS, INC.-2013-4535

PATIENT
  Age: 30 Year
  Sex: Female
  Weight: 59 kg

DRUGS (1)
  1. AZZALURE [Suspect]
     Indication: SKIN COSMETIC PROCEDURE
     Dosage: 70 UNITS
     Route: 030
     Dates: start: 20130914, end: 20130914

REACTIONS (1)
  - Panic attack [Recovered/Resolved]
